FAERS Safety Report 16659609 (Version 1)
Quarter: 2019Q3

REPORT INFORMATION
  Report Type: Spontaneous
  Country: DK (occurrence: DK)
  Receive Date: 20190802
  Receipt Date: 20190802
  Transmission Date: 20191004
  Serious: Yes (Other)
  Sender: FDA-Public Use
  Company Number: DK-TEVA-2019-DK-1086893

PATIENT
  Age: 46 Year
  Sex: Male

DRUGS (1)
  1. VANCOMYCIN [Suspect]
     Active Substance: VANCOMYCIN
     Route: 042
     Dates: start: 20171104

REACTIONS (2)
  - Renal failure [Not Recovered/Not Resolved]
  - Dialysis [Recovered/Resolved]

NARRATIVE: CASE EVENT DATE: 201703
